FAERS Safety Report 6994378-2 (Version None)
Quarter: 2010Q3

REPORT INFORMATION
  Report Type: 
  Country: None (occurrence: None)
  Receive Date: 20100917
  Receipt Date: 20100909
  Transmission Date: 20110219
  Serious: Yes (Other)
  Sender: FDA-Public Use
  Company Number: US-AMGEN-KDL438214

PATIENT
  Sex: Female

DRUGS (3)
  1. PROCRIT [Suspect]
     Indication: MYELODYSPLASTIC SYNDROME
     Route: 058
     Dates: start: 20040101
  2. FERRLECIT [Concomitant]
     Route: 042
  3. OXYGEN [Concomitant]

REACTIONS (6)
  - BEDRIDDEN [None]
  - BLOOD IRON DECREASED [None]
  - DIZZINESS [None]
  - MOBILITY DECREASED [None]
  - NAUSEA [None]
  - RETCHING [None]
